FAERS Safety Report 7449972-1 (Version None)
Quarter: 2011Q2

REPORT INFORMATION
  Report Type: 
  Country: None (occurrence: None)
  Receive Date: 20110421
  Receipt Date: 20110408
  Transmission Date: 20111010
  Serious: Yes (Hospitalization)
  Sender: FDA-Public Use
  Company Number: 20110010USST

PATIENT
  Age: 42 Year
  Sex: Female

DRUGS (1)
  1. L-CARNITINE [Suspect]
     Indication: WEIGHT CONTROL
     Dosage: 4000 MG ORAL
     Route: 048

REACTIONS (32)
  - WHITE BLOOD CELL COUNT INCREASED [None]
  - WHITE BLOOD CELLS URINE POSITIVE [None]
  - LACERATION [None]
  - AMNESIA [None]
  - BIPOLAR I DISORDER [None]
  - BLOOD CREATINE PHOSPHOKINASE INCREASED [None]
  - IRRITABILITY [None]
  - ABNORMAL BEHAVIOUR [None]
  - INCORRECT DOSE ADMINISTERED [None]
  - AGGRESSION [None]
  - SOMNOLENCE [None]
  - THINKING ABNORMAL [None]
  - CONVULSION [None]
  - URINARY TRACT INFECTION [None]
  - HALLUCINATION, AUDITORY [None]
  - RHABDOMYOLYSIS [None]
  - NEUTROPHIL COUNT INCREASED [None]
  - LACK OF SPONTANEOUS SPEECH [None]
  - COGNITIVE DISORDER [None]
  - SCHIZOPHRENIA [None]
  - PSYCHOTIC DISORDER [None]
  - TREATMENT NONCOMPLIANCE [None]
  - URINE LEUKOCYTE ESTERASE POSITIVE [None]
  - PSYCHOMOTOR RETARDATION [None]
  - FRUSTRATION [None]
  - EMOTIONAL DISTRESS [None]
  - AGITATION [None]
  - CONFUSIONAL STATE [None]
  - MENTAL STATUS CHANGES [None]
  - CONSTRICTED AFFECT [None]
  - RENAL FAILURE [None]
  - PSYCHOMOTOR HYPERACTIVITY [None]
